FAERS Safety Report 23634897 (Version 2)
Quarter: 2024Q2

REPORT INFORMATION
  Report Type: Report from Study
  Country: US (occurrence: US)
  Receive Date: 20240315
  Receipt Date: 20240613
  Transmission Date: 20240715
  Serious: Yes (Hospitalization, Other)
  Sender: FDA-Public Use
  Company Number: US-ABBVIE-5667667

PATIENT
  Age: 43 Year
  Sex: Male

DRUGS (2)
  1. SKYRIZI [Suspect]
     Active Substance: RISANKIZUMAB-RZAA
     Indication: Psoriasis
     Route: 058
     Dates: start: 20230803
  2. SKYRIZI [Suspect]
     Active Substance: RISANKIZUMAB-RZAA
     Route: 058
     Dates: start: 20230512, end: 202312

REACTIONS (8)
  - Staphylococcal infection [Unknown]
  - Procedural pain [Not Recovered/Not Resolved]
  - Unevaluable event [Unknown]
  - Arthritis [Recovered/Resolved]
  - Arthralgia [Recovering/Resolving]
  - Musculoskeletal disorder [Recovered/Resolved]
  - Arthropod bite [Recovered/Resolved]
  - Malaise [Recovered/Resolved]

NARRATIVE: CASE EVENT DATE: 20231101
